FAERS Safety Report 20654839 (Version 1)
Quarter: 2022Q1

REPORT INFORMATION
  Report Type: Spontaneous
  Country: NZ (occurrence: NZ)
  Receive Date: 20220330
  Receipt Date: 20220330
  Transmission Date: 20220423
  Serious: Yes (Death, Other)
  Sender: FDA-Public Use
  Company Number: NZ-NAPPMUNDI-GBR-2022-0096571

PATIENT
  Age: 87 Year
  Sex: Female

DRUGS (1)
  1. NORSPAN [Suspect]
     Active Substance: BUPRENORPHINE
     Indication: Pain management
     Dosage: 5 MCG, Q1H [STRENGTH 5 MG]
     Route: 062
     Dates: start: 20220224, end: 20220225

REACTIONS (2)
  - Brain hypoxia [Fatal]
  - Cerebrovascular disorder [Unknown]

NARRATIVE: CASE EVENT DATE: 20220201
